FAERS Safety Report 6201341-8 (Version None)
Quarter: 2009Q2

REPORT INFORMATION
  Report Type: 
  Country: None (occurrence: None)
  Receive Date: 20090526
  Receipt Date: 20090518
  Transmission Date: 20091009
  Serious: Yes (Death, Other)
  Sender: FDA-Public Use
  Company Number: PHHY2009TN19178

PATIENT
  Age: 19 Year

DRUGS (11)
  1. CYCLOSPORINE [Suspect]
     Indication: STEM CELL TRANSPLANT
     Dosage: 3 MG/KG/DAY
     Route: 042
  2. CYCLOSPORINE [Suspect]
     Indication: PROPHYLAXIS AGAINST GRAFT VERSUS HOST DISEASE
  3. METHOTREXATE [Suspect]
     Indication: PROPHYLAXIS AGAINST GRAFT VERSUS HOST DISEASE
     Dosage: 15 MG/M^2
  4. METHOTREXATE [Suspect]
     Dosage: 10 MG/M^2
  5. CYCLOPHOSPHAMIDE [Suspect]
     Dosage: 50 MG/KG/DAY
  6. ANTI-THYMOCYTE GLOBULIN NOS [Concomitant]
     Dosage: 30 MG/KG/DAY
     Route: 042
  7. NEUPOGEN [Concomitant]
     Dosage: 5 UG/KG/DAY
     Route: 058
  8. IRRADIATION [Concomitant]
  9. BUSILVEX [Concomitant]
     Dosage: 0.8 MG/KG/6 HR
  10. FLUCONAZOLE [Concomitant]
     Indication: CANDIDIASIS
     Dosage: 400 MG/DAY
  11. ACYCLOVIR SODIUM [Concomitant]
     Indication: HERPES VIRUS INFECTION
     Dosage: 500 MG/M2, TID

REACTIONS (5)
  - ACUTE GRAFT VERSUS HOST DISEASE [None]
  - CYSTITIS HAEMORRHAGIC [None]
  - EPSTEIN-BARR VIRUS INFECTION [None]
  - HISTIOCYTOSIS HAEMATOPHAGIC [None]
  - MULTI-ORGAN FAILURE [None]
